FAERS Safety Report 25677020 (Version 2)
Quarter: 2025Q3

REPORT INFORMATION
  Report Type: Spontaneous
  Country: US (occurrence: US)
  Receive Date: 20250813
  Receipt Date: 20250818
  Transmission Date: 20251021
  Serious: No
  Sender: SANOFI AVENTIS
  Company Number: US-SA-2025SA234876

PATIENT
  Age: 21 Year
  Sex: Male

DRUGS (6)
  1. TZIELD [Suspect]
     Active Substance: TEPLIZUMAB-MZWV
     Indication: Diabetes prophylaxis
     Route: 042
     Dates: start: 20250805, end: 20250805
  2. TZIELD [Suspect]
     Active Substance: TEPLIZUMAB-MZWV
     Route: 042
     Dates: start: 20250806, end: 20250806
  3. TZIELD [Suspect]
     Active Substance: TEPLIZUMAB-MZWV
     Route: 042
     Dates: start: 20250807, end: 20250807
  4. TZIELD [Suspect]
     Active Substance: TEPLIZUMAB-MZWV
     Route: 042
     Dates: start: 20250808, end: 20250808
  5. TZIELD [Suspect]
     Active Substance: TEPLIZUMAB-MZWV
     Dosage: 2049.7 UG, QD
     Route: 042
     Dates: start: 20250809
  6. IBUPROFEN [Concomitant]
     Active Substance: IBUPROFEN
     Indication: Premedication
     Dates: start: 20250805

REACTIONS (6)
  - Abdominal pain upper [Recovered/Resolved]
  - Oropharyngeal pain [Unknown]
  - Pain [Unknown]
  - Body temperature increased [Unknown]
  - Fatigue [Unknown]
  - Diarrhoea [Recovered/Resolved]

NARRATIVE: CASE EVENT DATE: 20250806
